FAERS Safety Report 15197040 (Version 3)
Quarter: 2019Q1

REPORT INFORMATION
  Report Type: Spontaneous
  Country: JP (occurrence: JP)
  Receive Date: 20180725
  Receipt Date: 20190122
  Transmission Date: 20190417
  Serious: Yes (Life-Threatening, Hospitalization, Other)
  Sender: FDA-Public Use
  Company Number: JP-ELI_LILLY_AND_COMPANY-JP201807011047

PATIENT
  Sex: Female

DRUGS (6)
  1. SOLANAX [Suspect]
     Active Substance: ALPRAZOLAM
     Indication: BIPOLAR DISORDER
     Dosage: 0.4 MG, BID
     Route: 064
  2. ABILIFY [Suspect]
     Active Substance: ARIPIPRAZOLE
     Indication: BIPOLAR DISORDER
     Dosage: 6 MG, BID
     Route: 064
  3. ABILIFY [Suspect]
     Active Substance: ARIPIPRAZOLE
     Indication: BIPOLAR DISORDER
     Dosage: 6 MG, BID
     Route: 064
  4. DULOXETINE HYDROCHLORIDE. [Suspect]
     Active Substance: DULOXETINE HYDROCHLORIDE
     Indication: BIPOLAR DISORDER
     Dosage: 20 MG, DAILY
     Route: 064
  5. DULOXETINE HYDROCHLORIDE. [Suspect]
     Active Substance: DULOXETINE HYDROCHLORIDE
     Indication: BIPOLAR DISORDER
     Dosage: 20 MG, DAILY
     Route: 064
  6. SOLANAX [Suspect]
     Active Substance: ALPRAZOLAM
     Indication: BIPOLAR DISORDER
     Dosage: 0.4 MG, BID
     Route: 064

REACTIONS (9)
  - Hypotonia neonatal [Recovered/Resolved]
  - Infantile apnoea [Recovering/Resolving]
  - Foetal exposure during pregnancy [Recovered/Resolved]
  - Irritability [Recovered/Resolved]
  - Somnolence neonatal [Recovered/Resolved]
  - Tremor neonatal [Recovered/Resolved]
  - Neonatal asphyxia [Recovered/Resolved]
  - Drug withdrawal syndrome neonatal [Recovering/Resolving]
  - Premature baby [Unknown]

NARRATIVE: CASE EVENT DATE: 20160629
